FAERS Safety Report 9032601 (Version 1)
Quarter: 2013Q1

REPORT INFORMATION
  Report Type: Spontaneous
  Country: GB (occurrence: None)
  Receive Date: 20130109
  Receipt Date: 20130109
  Transmission Date: 20140127
  Serious: Yes (Hospitalization)
  Sender: FDA-Public Use
  Company Number: AUR-APL-2013-00016

PATIENT
  Age: 92 Year
  Sex: Female

DRUGS (5)
  1. AMOXICILLIN (AMOXICILLIN) [Suspect]
     Indication: PRODUCT USED FOR UNKNOWN INDICATION
     Route: 048
     Dates: start: 20100610, end: 20100617
  2. CIPROFLOXACIN (CIPROFLOXACIN) [Suspect]
     Indication: MORAXELLA INFECTION
     Route: 048
     Dates: start: 20110505, end: 20110510
  3. OMEPRAZOLE (OMEPRAZOLE) (OMEPRAZOLE) [Suspect]
     Indication: PRODUCT USED FOR UNKNOWN INDICATION
  4. CIPROFLOXACIN (CIPROFLOXACIN) [Suspect]
     Indication: PRODUCT USED FOR UNKNOWN INDICATION
  5. AMOXICILLIN\CLAVULANIC ACID [Suspect]
     Indication: PRODUCT USED FOR UNKNOWN INDICATION
     Dates: start: 20110504, end: 20110504

REACTIONS (5)
  - Clostridium difficile infection [None]
  - Norovirus test positive [None]
  - Pneumonia [None]
  - Back pain [None]
  - Clostridium difficile colitis [None]
